FAERS Safety Report 5026908-4 (Version None)
Quarter: 2006Q2

REPORT INFORMATION
  Report Type: 
  Country: None (occurrence: None)
  Receive Date: 20060609
  Receipt Date: 20060601
  Transmission Date: 20061013
  Serious: Yes (Hospitalization, Other)
  Sender: FDA-Public Use
  Company Number: HQWYE364016MAY06

PATIENT
  Age: 23 Year
  Sex: Female

DRUGS (9)
  1. RAPAMUNE [Suspect]
     Indication: PROPHYLAXIS AGAINST TRANSPLANT REJECTION
     Dosage: SEE IMAGE, ORAL
     Route: 048
     Dates: start: 20060204, end: 20060416
  2. RAPAMUNE [Suspect]
     Indication: PROPHYLAXIS AGAINST TRANSPLANT REJECTION
     Dosage: SEE IMAGE, ORAL
     Route: 048
     Dates: start: 20060417, end: 20060501
  3. RAPAMUNE [Suspect]
     Indication: PROPHYLAXIS AGAINST TRANSPLANT REJECTION
     Dosage: SEE IMAGE, ORAL
     Route: 048
     Dates: start: 20060502
  4. TACROLIMUS (TACROLIMUS) [Suspect]
     Dosage: 7 MG 1X PER 1 DAY
     Dates: start: 20060424, end: 20060517
  5. SULFAMETHOXAZOLE + TRIMETHOPRIM [Concomitant]
  6. FUROSEMIDE [Concomitant]
  7. AMLODIPINE [Concomitant]
  8. PROPRANOLOL [Concomitant]
  9. OMEPRAZOLE [Concomitant]

REACTIONS (4)
  - BLOOD CREATININE INCREASED [None]
  - BLOOD UREA INCREASED [None]
  - GRAFT DYSFUNCTION [None]
  - THROMBOTIC MICROANGIOPATHY [None]
